FAERS Safety Report 7266737-4 (Version None)
Quarter: 2011Q1

REPORT INFORMATION
  Report Type: 
  Country: None (occurrence: None)
  Receive Date: 20110201
  Receipt Date: 20110120
  Transmission Date: 20110831
  Serious: No
  Sender: FDA-Public Use
  Company Number: US-BIOGENIDEC-2011BI002424

PATIENT
  Age: 36 Year
  Sex: Female

DRUGS (4)
  1. TYSABRI [Suspect]
     Indication: MULTIPLE SCLEROSIS
     Route: 042
     Dates: start: 20101130
  2. REBIF [Concomitant]
     Indication: MUSCULOSKELETAL DISORDER
  3. NEURONTIN [Concomitant]
     Indication: MUSCULOSKELETAL DISORDER
  4. DILANTIN [Concomitant]
     Indication: MUSCULOSKELETAL DISORDER

REACTIONS (2)
  - TRIGEMINAL NEURALGIA [None]
  - MULTIPLE SCLEROSIS RELAPSE [None]
